FAERS Safety Report 9234082 (Version 1)
Quarter: 2013Q2

REPORT INFORMATION
  Report Type: Spontaneous
  Country: JP (occurrence: JP)
  Receive Date: 20130416
  Receipt Date: 20130416
  Transmission Date: 20140414
  Serious: Yes (Other)
  Sender: FDA-Public Use
  Company Number: JP-PFIZER INC-2013114891

PATIENT
  Age: 62 Year
  Sex: Male

DRUGS (2)
  1. METHOTREXATE SODIUM [Suspect]
     Indication: ACUTE PROMYELOCYTIC LEUKAEMIA
  2. CYTARABINE [Suspect]
     Indication: ACUTE PROMYELOCYTIC LEUKAEMIA

REACTIONS (7)
  - Acute respiratory distress syndrome [Unknown]
  - Cardiac failure congestive [Unknown]
  - Neutropenia [Unknown]
  - Infection [Unknown]
  - Ventricular tachycardia [None]
  - Blood potassium increased [None]
  - Blood magnesium increased [None]
